FAERS Safety Report 5108935-1 (Version None)
Quarter: 2006Q3

REPORT INFORMATION
  Report Type: 
  Country: None (occurrence: None)
  Receive Date: 20060915
  Receipt Date: 20060915
  Transmission Date: 20061208
  Serious: Yes (Hospitalization)
  Sender: FDA-Public Use
  Company Number: None

PATIENT
  Age: 66 Year
  Sex: Male
  Weight: 100.6985 kg

DRUGS (1)
  1. RAMELTEON 8 MG [Suspect]
     Indication: INSOMNIA
     Dosage: 8 MG PO QHS
     Route: 048

REACTIONS (7)
  - BLOOD CREATININE INCREASED [None]
  - DIARRHOEA [None]
  - GASTROENTERITIS VIRAL [None]
  - NAUSEA [None]
  - URINE OUTPUT DECREASED [None]
  - VOMITING [None]
  - WEIGHT INCREASED [None]
